FAERS Safety Report 4811376-5 (Version None)
Quarter: 2005Q4

REPORT INFORMATION
  Report Type: 
  Country: None (occurrence: None)
  Receive Date: 20051027
  Receipt Date: 20051021
  Transmission Date: 20060501
  Serious: Yes (Death, Other)
  Sender: FDA-Public Use
  Company Number: PHBS2005NO15604

PATIENT
  Age: 58 Year
  Sex: Female

DRUGS (1)
  1. ZOMETA [Suspect]
     Route: 065
     Dates: start: 20040817

REACTIONS (3)
  - DEATH [None]
  - OSTEONECROSIS [None]
  - TOOTH EXTRACTION [None]
